FAERS Safety Report 19960180 (Version 1)
Quarter: 2021Q4

REPORT INFORMATION
  Report Type: Spontaneous
  Country: US (occurrence: US)
  Receive Date: 20211015
  Receipt Date: 20211015
  Transmission Date: 20220303
  Serious: No
  Sender: FDA-Public Use
  Company Number: US-MYLANLABS-2021M1066691

PATIENT
  Sex: Female

DRUGS (1)
  1. IBANDRONIC ACID [Suspect]
     Active Substance: IBANDRONIC ACID
     Indication: Osteopenia
     Dosage: 3 MILLIGRAM, 3XMONTHS
     Route: 042
     Dates: start: 20210924, end: 20210924

REACTIONS (4)
  - Product quality issue [Unknown]
  - Syringe issue [Unknown]
  - Product dose omission issue [Unknown]
  - Wrong technique in product usage process [Unknown]
